FAERS Safety Report 5272899-0 (Version None)
Quarter: 2007Q1

REPORT INFORMATION
  Report Type: 
  Country: None (occurrence: None)
  Receive Date: 20070322
  Receipt Date: 20070319
  Transmission Date: 20070707
  Serious: Yes (Hospitalization)
  Sender: FDA-Public Use
  Company Number: GBWYE862029JUN04

PATIENT
  Sex: Female
  Weight: 71 kg

DRUGS (18)
  1. TACROLIMUS [Suspect]
     Indication: IMMUNOSUPPRESSANT DRUG THERAPY
     Dosage: UNKNOWN
     Dates: start: 20030617, end: 20040618
  2. ATORVASTATIN CALCIUM [Concomitant]
     Indication: HYPERCHOLESTEROLAEMIA
     Dosage: UNKNOWN
     Dates: start: 20010912
  3. VERAPAMIL [Concomitant]
     Indication: ARRHYTHMIA
     Dosage: UNKNOWN
     Dates: start: 20010710, end: 20040625
  4. VERAPAMIL [Concomitant]
     Dosage: UNKNOWN
     Dates: start: 20040702
  5. CALCITRIOL [Concomitant]
     Indication: VITAMIN D DEFICIENCY
     Dosage: UNKNOWN
     Dates: start: 19940503
  6. OMEPRAZOLE [Concomitant]
     Indication: PROPHYLAXIS
     Dosage: UNKNOWN
     Dates: start: 19940903
  7. AMITRIPTYLINE HCL [Concomitant]
     Indication: DEPRESSION
     Dosage: UNKNOWN
     Dates: start: 20020409
  8. DIAZEPAM [Concomitant]
     Indication: ANXIETY
     Dosage: UNKNOWN
     Dates: start: 20020409
  9. CIPROFLOXACIN [Concomitant]
     Indication: PROPHYLAXIS
     Dosage: UNKNOWN
     Dates: start: 20010116, end: 20040630
  10. CIPROFLOXACIN [Concomitant]
     Dosage: UNKNOWN
     Dates: start: 20040706
  11. CARDURA [Concomitant]
     Indication: HYPERTENSION
     Dosage: UNKNOWN
     Dates: start: 20030808, end: 20040625
  12. CYCLIZINE [Concomitant]
     Indication: VOMITING
     Dosage: UNKNOWN
     Dates: start: 20030910
  13. IMODIUM [Concomitant]
     Indication: DIARRHOEA
     Dosage: UNKNOWN
     Dates: start: 20030910
  14. SPASMONAL [Concomitant]
     Indication: IRRITABLE BOWEL SYNDROME
     Dosage: UNKNOWN
     Dates: start: 20020409
  15. ACETAMINOPHEN [Concomitant]
     Indication: INFLUENZA LIKE ILLNESS
     Dosage: UNKNOWN
     Dates: start: 20040223, end: 20040229
  16. GALFER [Concomitant]
     Indication: FATIGUE
     Dosage: UNKNOWN
     Dates: start: 20040123
  17. MYCOPHENOLATE MOFETIL [Concomitant]
     Indication: IMMUNOSUPPRESSION
     Route: 048
     Dates: start: 20040621
  18. PREDNISOLONE [Concomitant]
     Indication: IMMUNOSUPPRESSION
     Route: 048
     Dates: start: 20040621

REACTIONS (4)
  - ABDOMINAL PAIN [None]
  - CHILLS [None]
  - MALAISE [None]
  - PYREXIA [None]
